FAERS Safety Report 11616711 (Version 1)
Quarter: 2015Q4

REPORT INFORMATION
  Report Type: Spontaneous
  Country: GB (occurrence: GB)
  Receive Date: 20151009
  Receipt Date: 20151009
  Transmission Date: 20160304
  Serious: Yes (Disabling)
  Sender: FDA-Public Use
  Company Number: GB-TEVA-598876ACC

PATIENT
  Age: 77 Year
  Sex: Male

DRUGS (14)
  1. ATORVASTATIN [Suspect]
     Active Substance: ATORVASTATIN
     Indication: BLOOD CHOLESTEROL
     Dosage: 80 MILLIGRAM DAILY; AT NIGHT; DAILY DOSE: 80 MILLIGRAM
     Route: 048
     Dates: start: 20150619, end: 20150716
  2. LEVOTHYROXINE. [Concomitant]
     Active Substance: LEVOTHYROXINE
  3. CALCICHEW D3 [Concomitant]
     Active Substance: CALCIUM\CHOLECALCIFEROL
  4. CHLORPHENAMINE [Concomitant]
     Active Substance: CHLORPHENIRAMINE MALEATE
  5. CLOPIDOGREL [Concomitant]
     Active Substance: CLOPIDOGREL BISULFATE
     Indication: CARDIAC DISORDER
  6. FUROSEMIDE. [Concomitant]
     Active Substance: FUROSEMIDE
  7. DONEPEZIL. [Concomitant]
     Active Substance: DONEPEZIL
  8. TAMSULOSIN [Concomitant]
     Active Substance: TAMSULOSIN
  9. OMEPRAZOLE. [Concomitant]
     Active Substance: OMEPRAZOLE
  10. SENNA [Concomitant]
     Active Substance: SENNA LEAF\SENNOSIDES\SENNOSIDES A AND B
  11. ASPIRIN. [Concomitant]
     Active Substance: ASPIRIN
     Indication: CARDIAC DISORDER
  12. GLYCERYL TRINITRATE [Concomitant]
     Active Substance: NITROGLYCERIN
  13. NICORANDIL [Concomitant]
     Active Substance: NICORANDIL
  14. TERBINAFINE. [Concomitant]
     Active Substance: TERBINAFINE

REACTIONS (11)
  - Dizziness postural [Recovering/Resolving]
  - Drug dispensing error [Unknown]
  - Fatigue [Recovering/Resolving]
  - Chest pain [Recovering/Resolving]
  - Restlessness [Recovering/Resolving]
  - Discomfort [Unknown]
  - Feeling hot [Recovering/Resolving]
  - Malaise [Recovering/Resolving]
  - Hyperhidrosis [Recovering/Resolving]
  - Somnolence [Recovering/Resolving]
  - Dyspnoea [Unknown]

NARRATIVE: CASE EVENT DATE: 20150619
